FAERS Safety Report 6868453-7 (Version None)
Quarter: 2010Q3

REPORT INFORMATION
  Report Type: 
  Country: None (occurrence: None)
  Receive Date: 20100722
  Receipt Date: 20080528
  Transmission Date: 20110219
  Serious: No
  Sender: FDA-Public Use
  Company Number: US-PFIZER INC-2008046772

PATIENT
  Sex: Female
  Weight: 56.8 kg

DRUGS (3)
  1. CHANTIX [Suspect]
     Indication: SMOKING CESSATION THERAPY
     Route: 048
     Dates: start: 20080401
  2. PROZAC [Concomitant]
     Route: 048
  3. ANTABUSE [Concomitant]
     Route: 048

REACTIONS (8)
  - ABNORMAL DREAMS [None]
  - CONFUSIONAL STATE [None]
  - DEPRESSION [None]
  - DISTURBANCE IN ATTENTION [None]
  - FEELING ABNORMAL [None]
  - HYPERSOMNIA [None]
  - MEMORY IMPAIRMENT [None]
  - SLEEP TALKING [None]
